FAERS Safety Report 25504095 (Version 1)
Quarter: 2025Q3

REPORT INFORMATION
  Report Type: Spontaneous
  Country: EU (occurrence: EU)
  Receive Date: 20250702
  Receipt Date: 20250702
  Transmission Date: 20251021
  Serious: Yes (Hospitalization)
  Sender: MYLAN
  Company Number: EU-ASTELLAS-2024EU003812

PATIENT
  Age: 78 Year
  Sex: Male

DRUGS (24)
  1. VALSARTAN [Suspect]
     Active Substance: VALSARTAN
     Indication: Hypertension
     Dosage: 160 MILLIGRAM, QD
  2. VALSARTAN [Suspect]
     Active Substance: VALSARTAN
     Dosage: 160 MILLIGRAM, QD
     Route: 065
  3. VALSARTAN [Suspect]
     Active Substance: VALSARTAN
     Dosage: 160 MILLIGRAM, QD
     Route: 065
  4. VALSARTAN [Suspect]
     Active Substance: VALSARTAN
     Dosage: 160 MILLIGRAM, QD
  5. MOXONIDINE [Suspect]
     Active Substance: MOXONIDINE
     Indication: Hypertension
     Dosage: 0.2 MILLIGRAM, BID (0.5 DAY)
     Route: 065
  6. MOXONIDINE [Suspect]
     Active Substance: MOXONIDINE
     Dosage: 0.2 MILLIGRAM, BID (0.5 DAY)
  7. MOXONIDINE [Suspect]
     Active Substance: MOXONIDINE
     Dosage: 0.2 MILLIGRAM, BID (0.5 DAY)
  8. MOXONIDINE [Suspect]
     Active Substance: MOXONIDINE
     Dosage: 0.2 MILLIGRAM, BID (0.5 DAY)
     Route: 065
  9. MOXONIDINE [Suspect]
     Active Substance: MOXONIDINE
     Dosage: 0.2 MILLIGRAM, QD
     Route: 065
  10. MOXONIDINE [Suspect]
     Active Substance: MOXONIDINE
     Dosage: 0.2 MILLIGRAM, QD
  11. MOXONIDINE [Suspect]
     Active Substance: MOXONIDINE
     Dosage: 0.2 MILLIGRAM, QD
  12. MOXONIDINE [Suspect]
     Active Substance: MOXONIDINE
     Dosage: 0.2 MILLIGRAM, QD
     Route: 065
  13. MIRABEGRON [Suspect]
     Active Substance: MIRABEGRON
     Indication: Benign prostatic hyperplasia
     Dosage: 50 MILLIGRAM, QD
  14. MIRABEGRON [Suspect]
     Active Substance: MIRABEGRON
     Dosage: 50 MILLIGRAM, QD
     Route: 065
  15. MIRABEGRON [Suspect]
     Active Substance: MIRABEGRON
     Dosage: 50 MILLIGRAM, QD
     Route: 065
  16. MIRABEGRON [Suspect]
     Active Substance: MIRABEGRON
     Dosage: 50 MILLIGRAM, QD
  17. AMLODIPINE BESYLATE\LISINOPRIL [Suspect]
     Active Substance: AMLODIPINE BESYLATE\LISINOPRIL
     Indication: Hypertension
     Dosage: QD (5/10MG)
  18. AMLODIPINE BESYLATE\LISINOPRIL [Suspect]
     Active Substance: AMLODIPINE BESYLATE\LISINOPRIL
     Dosage: QD (5/10MG)
     Route: 065
  19. AMLODIPINE BESYLATE\LISINOPRIL [Suspect]
     Active Substance: AMLODIPINE BESYLATE\LISINOPRIL
     Dosage: QD (5/10MG)
     Route: 065
  20. AMLODIPINE BESYLATE\LISINOPRIL [Suspect]
     Active Substance: AMLODIPINE BESYLATE\LISINOPRIL
     Dosage: QD (5/10MG)
  21. METOPROLOL [Suspect]
     Active Substance: METOPROLOL
     Indication: Hypertension
     Dosage: 100 MILLIGRAM, QD
  22. METOPROLOL [Suspect]
     Active Substance: METOPROLOL
     Dosage: 100 MILLIGRAM, QD
     Route: 065
  23. METOPROLOL [Suspect]
     Active Substance: METOPROLOL
     Dosage: 100 MILLIGRAM, QD
     Route: 065
  24. METOPROLOL [Suspect]
     Active Substance: METOPROLOL
     Dosage: 100 MILLIGRAM, QD

REACTIONS (3)
  - Basal cell carcinoma [Unknown]
  - Product contamination [Unknown]
  - Off label use [Unknown]
